FAERS Safety Report 12799561 (Version 5)
Quarter: 2018Q3

REPORT INFORMATION
  Report Type: Report from Study
  Country: BE (occurrence: BE)
  Receive Date: 20160930
  Receipt Date: 20180802
  Transmission Date: 20181010
  Serious: Yes (Hospitalization)
  Sender: FDA-Public Use
  Company Number: PHHO2016BE013896

PATIENT
  Age: 34 Year
  Sex: Female
  Weight: 46 kg

DRUGS (27)
  1. SPRYCEL [Suspect]
     Active Substance: DASATINIB
     Dosage: 100 MG
     Route: 048
  2. BACTRIM [Concomitant]
     Active Substance: SULFAMETHOXAZOLE\TRIMETHOPRIM
     Indication: INFECTION PROPHYLAXIS
     Dosage: 160/180 GR
     Route: 048
  3. TAVANIC [Concomitant]
     Active Substance: LEVOFLOXACIN
     Indication: INFECTION PROPHYLAXIS
     Dosage: 500 MG, UNK
     Route: 048
     Dates: start: 20160916
  4. SYNGEL [Concomitant]
     Indication: GASTRIC ULCER
     Dosage: 10 ML, TID
     Route: 048
     Dates: start: 20160916
  5. METHOTREXATE. [Suspect]
     Active Substance: METHOTREXATE
     Indication: PRODUCT USED FOR UNKNOWN INDICATION
     Dosage: 1447 MG, UNK, 12 MG, 4 X
     Route: 042
     Dates: start: 20160905, end: 20160922
  6. DIFLUCAN [Concomitant]
     Active Substance: FLUCONAZOLE
     Indication: PROPHYLAXIS
     Dosage: 50 MG, UNK
     Route: 048
     Dates: start: 20160917
  7. PANTOMED [Concomitant]
     Indication: GASTRIC ULCER
     Dosage: 40 MG
     Route: 048
  8. MOUTH WASH [Concomitant]
     Indication: PROPHYLAXIS
     Dosage: UNK
     Route: 048
  9. SPRYCEL [Suspect]
     Active Substance: DASATINIB
     Indication: PRODUCT USED FOR UNKNOWN INDICATION
     Dosage: 140 MG, UNK
     Route: 048
     Dates: start: 20160823
  10. METHOTREXATE. [Suspect]
     Active Substance: METHOTREXATE
     Dosage: 1572 MG, UNK, 12 MG, 1 X
     Route: 042
     Dates: start: 20161107, end: 20161116
  11. HYDROCORTISONE. [Concomitant]
     Active Substance: HYDROCORTISONE
     Dosage: 50, 1 X
     Route: 065
     Dates: start: 20161107, end: 20161116
  12. FRAXIPARINE [Concomitant]
     Active Substance: NADROPARIN CALCIUM
     Indication: PROPHYLAXIS
     Dosage: 2850 U, UNK
     Route: 042
     Dates: start: 20160917
  13. MOVICOL [Concomitant]
     Active Substance: POLYETHYLENE GLYCOL 3350\POTASSIUM CHLORIDE\SODIUM BICARBONATE\SODIUM CHLORIDE
     Indication: CONSTIPATION
     Dosage: 13.7 GR
     Route: 048
     Dates: start: 20160917
  14. BIFITERAL [Concomitant]
     Active Substance: LACTULOSE
     Indication: CONSTIPATION
     Dosage: 20 ML, BID
     Route: 048
     Dates: start: 20160917
  15. ACYCLOVIR. [Concomitant]
     Active Substance: ACYCLOVIR
     Indication: INFECTION PROPHYLAXIS
     Dosage: 800 MG
     Route: 048
  16. METHOTREXATE. [Suspect]
     Active Substance: METHOTREXATE
     Dosage: 1572 MG, UNK, 12 MG, 1 X
     Route: 042
     Dates: start: 20161010, end: 20161106
  17. ARACYTINE [Suspect]
     Active Substance: CYTARABINE
     Dosage: 4716 MG, BID, 40, 1 X
     Route: 065
     Dates: start: 20161010, end: 20161106
  18. MORPHINE [Concomitant]
     Active Substance: MORPHINE
     Indication: MUCOSAL INFLAMMATION
     Dosage: 30 MG, UNK
     Route: 042
     Dates: start: 20160917
  19. ZOVIRAX [Concomitant]
     Active Substance: ACYCLOVIR
     Indication: INFECTION PROPHYLAXIS
     Dosage: 800 MG, UNK
     Route: 048
  20. AMN107 [Suspect]
     Active Substance: NILOTINIB
     Indication: ACUTE LYMPHOCYTIC LEUKAEMIA
     Dosage: UNK
     Route: 048
     Dates: end: 20161221
  21. ATRIANCE [Suspect]
     Active Substance: NELARABINE
     Indication: PRODUCT USED FOR UNKNOWN INDICATION
     Dosage: UNK
     Route: 065
     Dates: end: 20161221
  22. ARACYTINE [Suspect]
     Active Substance: CYTARABINE
     Indication: PRODUCT USED FOR UNKNOWN INDICATION
     Dosage: 4341 MG, BID, 40, 4 X
     Route: 065
     Dates: start: 20160905, end: 20160922
  23. ARACYTINE [Suspect]
     Active Substance: CYTARABINE
     Dosage: 40, 1 X
     Route: 065
     Dates: start: 20161107, end: 20161116
  24. HYDROCORTISONE. [Concomitant]
     Active Substance: HYDROCORTISONE
     Dosage: 50, 1 X
     Route: 065
     Dates: start: 20161010, end: 20161106
  25. FOLAVIT [Concomitant]
     Active Substance: FOLIC ACID
     Indication: ANAEMIA
     Dosage: 4 MG, UNK
     Route: 048
  26. COCAINE [Concomitant]
     Active Substance: COCAINE
     Indication: PRODUCT USED FOR UNKNOWN INDICATION
     Route: 065
  27. HYDROCORTISONE. [Concomitant]
     Active Substance: HYDROCORTISONE
     Indication: PRODUCT USED FOR UNKNOWN INDICATION
     Dosage: 50, 4 X
     Route: 065
     Dates: start: 20160905, end: 20160922

REACTIONS (2)
  - Mucosal inflammation [Recovered/Resolved]
  - Hepatitis [Recovered/Resolved]

NARRATIVE: CASE EVENT DATE: 20160915
